FAERS Safety Report 4385804-6 (Version None)
Quarter: 2004Q2

REPORT INFORMATION
  Report Type: 
  Country: None (occurrence: None)
  Receive Date: 20040623
  Receipt Date: 20040526
  Transmission Date: 20050107
  Serious: Yes (Other)
  Sender: FDA-Public Use
  Company Number: 207154

PATIENT

DRUGS (1)
  1. MABTHERA (RITUXIMAB, RITUXIMAB) CONC FOR SOLUTION FOR INFUSION [Suspect]
     Indication: MANTLE CELL LYMPHOMA

REACTIONS (6)
  - ARTHRALGIA [None]
  - CANDIDIASIS [None]
  - CONJUNCTIVITIS [None]
  - IMMUNE SYSTEM DISORDER [None]
  - OESOPHAGITIS [None]
  - WEIGHT DECREASED [None]
